FAERS Safety Report 18194118 (Version 2)
Quarter: 2020Q3

REPORT INFORMATION
  Report Type: Report from Study
  Country: FR (occurrence: FR)
  Receive Date: 20200825
  Receipt Date: 20200827
  Transmission Date: 20201103
  Serious: Yes (Disabling)
  Sender: FDA-Public Use
  Company Number: FR-AMGEN-FRACT2020115225

PATIENT
  Age: 76 Year
  Sex: Male
  Weight: 75.8 kg

DRUGS (11)
  1. CLOPIDOGREL [Concomitant]
     Active Substance: CLOPIDOGREL BISULFATE
     Dosage: UNK
  2. EVOLOCUMAB [Suspect]
     Active Substance: EVOLOCUMAB
     Indication: DYSLIPIDAEMIA
     Dosage: UNK
     Route: 058
     Dates: start: 20170728
  3. ASPIRIN [ACETYLSALICYLIC ACID] [Concomitant]
     Active Substance: ASPIRIN
     Dosage: UNK
  4. CORDARONE [Concomitant]
     Active Substance: AMIODARONE HYDROCHLORIDE
     Dosage: 200 MILLIGRAM
     Route: 048
     Dates: start: 20190412
  5. LASILIX [FUROSEMIDE] [Concomitant]
     Active Substance: FUROSEMIDE
     Dosage: 40 MILLIGRAM
     Route: 048
     Dates: start: 20190412
  6. FEBUXOSTAT. [Concomitant]
     Active Substance: FEBUXOSTAT
     Dosage: 120 MILLIGRAM
     Route: 048
     Dates: start: 20090101
  7. XARELTO [Concomitant]
     Active Substance: RIVAROXABAN
     Dosage: 15 MICROGRAM
     Route: 048
     Dates: start: 20190308
  8. ATORVASTATINE [ATORVASTATIN] [Concomitant]
     Active Substance: ATORVASTATIN
     Indication: DYSLIPIDAEMIA
     Dosage: 80 MILLIGRAM
     Dates: start: 20140210
  9. RIVAROXABAN [Concomitant]
     Active Substance: RIVAROXABAN
     Dosage: UNK
  10. COLCHICINE. [Concomitant]
     Active Substance: COLCHICINE
     Dosage: 0.5 MILLIGRAM
     Route: 048
     Dates: start: 20090101
  11. LEVOTHYROXINE. [Concomitant]
     Active Substance: LEVOTHYROXINE
     Dosage: 75 MICROGRAM
     Route: 048
     Dates: start: 20190717

REACTIONS (1)
  - Inclusion body myositis [Not Recovered/Not Resolved]

NARRATIVE: CASE EVENT DATE: 20200702
